FAERS Safety Report 7267503-6 (Version None)
Quarter: 2011Q1

REPORT INFORMATION
  Report Type: 
  Country: None (occurrence: None)
  Receive Date: 20110201
  Receipt Date: 20110125
  Transmission Date: 20110831
  Serious: Yes (Other)
  Sender: FDA-Public Use
  Company Number: US-SANOFI-AVENTIS-2011SA005423

PATIENT
  Sex: Male

DRUGS (5)
  1. COUMADIN [Suspect]
     Indication: ATRIAL FIBRILLATION
     Route: 065
  2. MULTAQ [Suspect]
     Indication: ATRIAL FIBRILLATION
     Route: 048
     Dates: start: 20101001
  3. PLAVIX [Concomitant]
     Dates: start: 20101201
  4. COUMADIN [Suspect]
     Indication: ANTICOAGULANT THERAPY
     Route: 065
  5. ASPIRIN [Concomitant]
     Dates: start: 20101201

REACTIONS (4)
  - FALL [None]
  - CONTUSION [None]
  - ATRIAL FIBRILLATION [None]
  - UNDERDOSE [None]
